FAERS Safety Report 5652208-5 (Version None)
Quarter: 2008Q1

REPORT INFORMATION
  Report Type: 
  Country: None (occurrence: None)
  Receive Date: 20080304
  Receipt Date: 20080219
  Transmission Date: 20080703
  Serious: Yes (Hospitalization)
  Sender: FDA-Public Use
  Company Number: 02100-JPN-08-0099

PATIENT
  Age: 59 Year
  Sex: Male

DRUGS (6)
  1. PLETAL [Suspect]
     Indication: CEREBRAL INFARCTION
     Dosage: 100 MG, BID, ORAL, 100 MG, BID, ORAL
     Route: 048
     Dates: start: 20040907, end: 20060728
  2. PLETAL [Suspect]
     Indication: CEREBRAL INFARCTION
     Dosage: 100 MG, BID, ORAL, 100 MG, BID, ORAL
     Route: 048
     Dates: start: 20061002, end: 20080115
  3. PLETAL [Suspect]
     Indication: CEREBRAL INFARCTION
     Dosage: 81 MG, QD, ORAL, 81 MG, QD, ORAL
     Route: 046
     Dates: start: 20040907, end: 20060728
  4. PLETAL [Suspect]
     Indication: CEREBRAL INFARCTION
     Dosage: 81 MG, QD, ORAL, 81 MG, QD, ORAL
     Route: 046
     Dates: start: 20061002, end: 20080115
  5. AMLODIPINE BESYLATE [Concomitant]
  6. FERROMIA (FERROUS CITRATE) [Concomitant]

REACTIONS (6)
  - BLOOD UREA INCREASED [None]
  - CEREBRAL INFARCTION [None]
  - GASTRIC ULCER HAEMORRHAGE [None]
  - HAEMORRHAGE [None]
  - HELICOBACTER INFECTION [None]
  - IRON DEFICIENCY ANAEMIA [None]
